FAERS Safety Report 24459527 (Version 1)
Quarter: 2024Q4

REPORT INFORMATION
  Report Type: Report from Study
  Country: RO (occurrence: RO)
  Receive Date: 20241018
  Receipt Date: 20241018
  Transmission Date: 20250115
  Serious: No
  Sender: ROCHE
  Company Number: RO-ROCHE-3551593

PATIENT
  Age: 72 Year
  Sex: Male
  Weight: 80.0 kg

DRUGS (1)
  1. MABTHERA [Suspect]
     Active Substance: RITUXIMAB
     Indication: Non-Hodgkin^s lymphoma
     Dosage: 1600MG/13.4ML
     Route: 058

REACTIONS (2)
  - Hypoacusis [Unknown]
  - Polyp [Unknown]
